FAERS Safety Report 11873197 (Version 1)
Quarter: 2015Q4

REPORT INFORMATION
  Report Type: Spontaneous
  Country: US (occurrence: US)
  Receive Date: 20151228
  Receipt Date: 20151228
  Transmission Date: 20160305
  Serious: No
  Sender: FDA-Public Use
  Company Number: US-B.I. PHARMACEUTICALS,INC./RIDGEFIELD-2015-BI-70329BP

PATIENT
  Age: 44 Year
  Sex: Female

DRUGS (7)
  1. HUMIRA [Suspect]
     Active Substance: ADALIMUMAB
     Indication: PSORIASIS
     Dosage: 80 MG
     Route: 065
     Dates: start: 20150731, end: 20150731
  2. MELOXICAM. [Suspect]
     Active Substance: MELOXICAM
     Indication: PSORIATIC ARTHROPATHY
     Route: 065
     Dates: start: 20150902
  3. MOTRIN [Concomitant]
     Active Substance: IBUPROFEN
     Indication: PRODUCT USED FOR UNKNOWN INDICATION
     Route: 065
  4. XANAX [Concomitant]
     Active Substance: ALPRAZOLAM
     Indication: ANXIETY
     Route: 065
  5. IBUPROFEN. [Concomitant]
     Active Substance: IBUPROFEN
     Indication: PSORIATIC ARTHROPATHY
     Route: 065
     Dates: start: 2015
  6. NYSTATIN. [Concomitant]
     Active Substance: NYSTATIN
     Indication: PSORIASIS
     Route: 061
  7. HUMIRA [Suspect]
     Active Substance: ADALIMUMAB
     Dosage: 40 MG
     Route: 065
     Dates: start: 20150807

REACTIONS (12)
  - Constipation [Unknown]
  - Therapeutic response unexpected [Unknown]
  - Abdominal pain upper [Unknown]
  - Headache [Unknown]
  - Vision blurred [Unknown]
  - Basedow^s disease [Unknown]
  - Hypoaesthesia oral [Recovered/Resolved]
  - Drug effect incomplete [Unknown]
  - Nausea [Recovered/Resolved]
  - Eye inflammation [Unknown]
  - Dry eye [Unknown]
  - Psoriasis [Unknown]

NARRATIVE: CASE EVENT DATE: 2015
